FAERS Safety Report 16925392 (Version 2)
Quarter: 2019Q4

REPORT INFORMATION
  Report Type: Spontaneous
  Country: JP (occurrence: JP)
  Receive Date: 20191016
  Receipt Date: 20191018
  Transmission Date: 20200122
  Serious: Yes (Other)
  Sender: FDA-Public Use
  Company Number: JP-GLAXOSMITHKLINE-JP2019JPN183487

PATIENT
  Age: 6 Decade
  Sex: Male

DRUGS (6)
  1. AKINETON [Concomitant]
     Active Substance: BIPERIDEN HYDROCHLORIDE
     Dosage: 3 MG, 1D (1MG, 1 TABLET AFTER BREAKFAST AND 1MG, 2 TABLETS AT BEDTIME)
  2. ABILIFY [Concomitant]
     Active Substance: ARIPIPRAZOLE
     Dosage: 18 MG, 1D (12MG, 1 TABLET AFTER BREAKFAST AND 6MG, 1 TABLET AT BEDTIME)
  3. ZANTAC [Suspect]
     Active Substance: RANITIDINE HYDROCHLORIDE
     Dosage: 150 MG, QD (AT BEDTIME)
     Route: 048
     Dates: start: 2012
  4. LENDORMIN TABLETS [Concomitant]
     Dosage: 0.25 MG, QD (AT BEDTIME)
  5. MYSLEE [Concomitant]
     Active Substance: ZOLPIDEM TARTRATE
     Dosage: 4 MG, QD (AT BEDTIME)
  6. RISPERDAL TABLETS [Concomitant]
     Dosage: 6 MG, 1D (2MG, 1 TABLET AFTER BREAKFAST AND 2MG, 2 TABLETS AT BEDTIME)

REACTIONS (3)
  - Squamous cell carcinoma [Unknown]
  - Metastases to lymph nodes [Unknown]
  - Pharyngeal cancer [Unknown]

NARRATIVE: CASE EVENT DATE: 2014
